FAERS Safety Report 8975942 (Version 2)
Quarter: 2012Q4

REPORT INFORMATION
  Report Type: 
  Country: PT (occurrence: PT)
  Receive Date: 20121219
  Receipt Date: 20121220
  Transmission Date: 20130627
  Serious: Yes (Hospitalization)
  Sender: FDA-Public Use
  Company Number: PT-GLAXOSMITHKLINE-B0852263A

PATIENT
  Sex: Male

DRUGS (3)
  1. SERETIDE DISKUS [Suspect]
     Indication: PRODUCT USED FOR UNKNOWN INDICATION
     Route: 055
     Dates: start: 20121015, end: 20121024
  2. CARDIAC MEDICATION [Concomitant]
  3. UNKNOWN MEDICATION [Concomitant]

REACTIONS (2)
  - Renal failure [Not Recovered/Not Resolved]
  - Product quality issue [Unknown]
